FAERS Safety Report 4860445-2 (Version None)
Quarter: 2005Q4

REPORT INFORMATION
  Report Type: 
  Country: None (occurrence: None)
  Receive Date: 20051219
  Receipt Date: 20051104
  Transmission Date: 20060501
  Serious: Yes (Hospitalization, Other)
  Sender: FDA-Public Use
  Company Number: PHHO2005US17433

PATIENT
  Age: 57 Year
  Sex: Male
  Weight: 115 kg

DRUGS (17)
  1. NEORAL [Suspect]
     Indication: RENAL TRANSPLANT
     Route: 048
     Dates: start: 20050105, end: 20050927
  2. PROGRAF [Suspect]
     Indication: RENAL TRANSPLANT
     Dosage: 6 MG, BID
     Route: 048
     Dates: start: 20050927
  3. PROGRAF [Suspect]
     Dosage: 5 MG, BID
     Route: 048
     Dates: start: 20051018
  4. PREDNISONE [Concomitant]
     Indication: RENAL TRANSPLANT
     Dosage: 10 MG, QD
     Route: 048
     Dates: start: 20050303
  5. NOVOLOG [Concomitant]
     Route: 058
  6. VALSARTAN [Concomitant]
  7. KETOCONAZOLE [Concomitant]
  8. ZOCOR [Concomitant]
  9. NORVASC [Concomitant]
  10. ASCORBIC ACID [Concomitant]
  11. ASPIRIN [Concomitant]
  12. LABETALOL [Concomitant]
  13. MAGNESIUM OXIDE [Concomitant]
  14. MULTI-VITAMIN [Concomitant]
  15. PROTONIX [Concomitant]
  16. K-PHOS NEUTRAL [Concomitant]
  17. K-DUR 10 [Concomitant]

REACTIONS (6)
  - BLOOD GLUCOSE INCREASED [None]
  - BLOOD POTASSIUM DECREASED [None]
  - DIABETES MELLITUS INADEQUATE CONTROL [None]
  - FOCAL GLOMERULOSCLEROSIS [None]
  - HYPERTENSION [None]
  - HYPOKALAEMIA [None]
